FAERS Safety Report 14929829 (Version 3)
Quarter: 2018Q4

REPORT INFORMATION
  Report Type: Spontaneous
  Country: DE (occurrence: DE)
  Receive Date: 20180523
  Receipt Date: 20181226
  Transmission Date: 20190204
  Serious: Yes (Other)
  Sender: FDA-Public Use
  Company Number: DE-MYLANLABS-2018M1033188

PATIENT
  Age: 41 Year
  Sex: Male

DRUGS (12)
  1. MELPHALAN. [Suspect]
     Active Substance: MELPHALAN
     Dosage: ON DAYS -5 AND -4 (IMC REGIMEN)
     Route: 041
  2. MELPHALAN. [Suspect]
     Active Substance: MELPHALAN
     Indication: PLASMA CELL MYELOMA
     Dosage: 1 X 15 MG/M2 (MP REGIMEN)
     Route: 042
  3. MELPHALAN. [Suspect]
     Active Substance: MELPHALAN
     Dosage: 100 MILLIGRAM/SQ. METER, CYCLE 100 MG/M2, ON DAYS -5 AND -4 (IMC REGIMEN)
     Route: 041
  4. IDARUBICIN [Suspect]
     Active Substance: IDARUBICIN
     Indication: PLASMA CELL MYELOMA
     Dosage: 20 MILLIGRAM/SQ. METER, CYCLE 20 MG/M2, ON DAYS -13,-12 AND -11 (IMC REGIMEN)
     Route: 041
  5. VINCRISTINE [Concomitant]
     Active Substance: VINCRISTINE
     Indication: PLASMA CELL MYELOMA
     Dosage: 2 MILLIGRAM, CYCLE (2 MG, UNK (ON DAY 1)
     Route: 040
  6. ENDOXAN                            /00021102/ [Suspect]
     Active Substance: CYCLOPHOSPHAMIDE
     Indication: PLASMA CELL MYELOMA
     Dosage: ON DAY -3 AND -2 (IMC REGIMEN)
     Route: 041
  7. DEXAMETHASONE. [Concomitant]
     Active Substance: DEXAMETHASONE
     Indication: PLASMA CELL MYELOMA
     Dosage: UNK, CYCLE 8X40 MG (VAD REGIMEN)
     Route: 048
  8. MESNA. [Concomitant]
     Active Substance: MESNA
     Indication: PRODUCT USED FOR UNKNOWN INDICATION
     Dosage: 60 MG/KG, ON DAY -3 AND -2 (ALONG WITH IMC REGIMEN)
     Route: 065
  9. PREDNISONE. [Concomitant]
     Active Substance: PREDNISONE
     Indication: PLASMA CELL MYELOMA
     Dosage: UNK, CYCLE (4 X 60 MG/M2)
     Route: 048
  10. IDARUBICIN [Suspect]
     Active Substance: IDARUBICIN
     Indication: PLASMA CELL MYELOMA
     Dosage: 4X10 MG/M2
     Route: 048
  11. ENDOXAN                            /00021102/ [Suspect]
     Active Substance: CYCLOPHOSPHAMIDE
     Indication: HAEMATOPOIETIC STEM CELL MOBILISATION
     Dosage: 60 MG/KG, ON DAY 3 AND DAY 2 (IMC REGIMEN)
     Route: 065
  12. ENDOXAN                            /00021102/ [Suspect]
     Active Substance: CYCLOPHOSPHAMIDE
     Indication: PLASMA CELL MYELOMA

REACTIONS (3)
  - Pyrexia [Unknown]
  - Mucosal inflammation [Unknown]
  - Haematotoxicity [Unknown]
